FAERS Safety Report 10549021 (Version 1)
Quarter: 2014Q4

REPORT INFORMATION
  Report Type: Spontaneous
  Country: US (occurrence: None)
  Receive Date: 20141027
  Receipt Date: 20141027
  Transmission Date: 20150529
  Serious: No
  Sender: FDA-Public Use
  Company Number: None

PATIENT
  Age: 62 Year
  Sex: Male

DRUGS (1)
  1. GABAPENTIN 300 MG [Suspect]
     Active Substance: GABAPENTIN

REACTIONS (4)
  - Blindness [None]
  - Neuropathy peripheral [None]
  - Blindness unilateral [None]
  - Impaired driving ability [None]

NARRATIVE: CASE EVENT DATE: 20140807
